FAERS Safety Report 5326109-6 (Version None)
Quarter: 2007Q2

REPORT INFORMATION
  Report Type: 
  Country: None (occurrence: None)
  Receive Date: 20070516
  Receipt Date: 20070418
  Transmission Date: 20071010
  Serious: No
  Sender: FDA-Public Use
  Company Number: US-JNJFOC-20070404234

PATIENT
  Age: 19 Year
  Sex: Male

DRUGS (3)
  1. INVEGA [Suspect]
     Indication: SCHIZOPHRENIA
     Route: 048
  2. CYMBALTA [Concomitant]
  3. RISPERDAL [Concomitant]

REACTIONS (1)
  - DYSTONIA [None]
